FAERS Safety Report 5724261-1 (Version None)
Quarter: 2008Q2

REPORT INFORMATION
  Report Type: 
  Country: None (occurrence: None)
  Receive Date: 20080430
  Receipt Date: 20080416
  Transmission Date: 20081010
  Serious: Yes (Other)
  Sender: FDA-Public Use
  Company Number: PHEH2008US03884

PATIENT
  Sex: Female

DRUGS (2)
  1. LESCOL XL [Suspect]
  2. LESCOL [Suspect]

REACTIONS (3)
  - BLOOD CHOLESTEROL INCREASED [None]
  - CARDIAC DISORDER [None]
  - MITRAL VALVE PROLAPSE [None]
